FAERS Safety Report 8468898-8 (Version None)
Quarter: 2012Q2

REPORT INFORMATION
  Report Type: 
  Country: None (occurrence: None)
  Receive Date: 20120626
  Receipt Date: 20120625
  Transmission Date: 20120825
  Serious: Yes (Life-Threatening, Hospitalization, Other)
  Sender: FDA-Public Use
  Company Number: CA-BAYER-2012-054545

PATIENT
  Sex: Female
  Weight: 65 kg

DRUGS (4)
  1. ANTIBIOTICS [Concomitant]
  2. HYPNOTICS AND SEDATIVES [Concomitant]
  3. GADAVIST [Suspect]
     Indication: NUCLEAR MAGNETIC RESONANCE IMAGING
     Dosage: 6.5 ML, ONCE
     Route: 042
  4. PROPOFOL [Concomitant]

REACTIONS (5)
  - HYPOVOLAEMIC SHOCK [None]
  - RESPIRATORY FAILURE [None]
  - ANAPHYLACTIC REACTION [None]
  - PULMONARY OEDEMA [None]
  - CARDIOVASCULAR INSUFFICIENCY [None]
